FAERS Safety Report 13937677 (Version 2)
Quarter: 2018Q2

REPORT INFORMATION
  Report Type: Spontaneous
  Country: US (occurrence: US)
  Receive Date: 20170905
  Receipt Date: 20180628
  Transmission Date: 20180711
  Serious: Yes (Death, Hospitalization, Other)
  Sender: FDA-Public Use
  Company Number: US-BAYER-2017-164379

PATIENT
  Age: 48 Year
  Sex: Female

DRUGS (11)
  1. ALLOPURINOL. [Concomitant]
     Active Substance: ALLOPURINOL
     Dosage: 100 MG, QD
     Route: 048
  2. LASIX [Concomitant]
     Active Substance: FUROSEMIDE
     Dosage: 40 MG, QD
     Route: 048
  3. BETASERON [Suspect]
     Active Substance: INTERFERON BETA-1B
     Indication: RELAPSING MULTIPLE SCLEROSIS
     Dosage: 0.25 MG, QOD
     Route: 058
     Dates: start: 2006
  4. COUMADIN [Concomitant]
     Active Substance: WARFARIN SODIUM
     Dosage: 5 MG, QD
     Route: 048
  5. POTASSIUM CHLORIDE. [Concomitant]
     Active Substance: POTASSIUM CHLORIDE
     Dosage: 10 MEQ, QD
     Route: 048
  6. PRAMIPEXOLE DIHYDROCHLORIDE. [Concomitant]
     Active Substance: PRAMIPEXOLE DIHYDROCHLORIDE
     Dosage: 0.75 MG, BID
     Route: 048
  7. VITAMIN B12 [Concomitant]
     Active Substance: CYANOCOBALAMIN
     Dosage: 1000 ?G, QD
     Route: 048
  8. LISINOPRIL. [Concomitant]
     Active Substance: LISINOPRIL
     Dosage: 10 MG, QD
     Route: 048
  9. VITAMIN D3 [Concomitant]
     Active Substance: CHOLECALCIFEROL
     Dosage: 50000 U, OW
     Route: 048
  10. METOPROLOL SUCCINATE. [Concomitant]
     Active Substance: METOPROLOL SUCCINATE
     Dosage: 50 MG, QD
     Route: 048
  11. ALEVE [Concomitant]
     Active Substance: NAPROXEN SODIUM
     Route: 048

REACTIONS (42)
  - Pneumonia [Fatal]
  - Dyspnoea [Fatal]
  - Gastrointestinal haemorrhage [None]
  - Right ventricular dysfunction [None]
  - Tachycardia [None]
  - Sinus arrhythmia [None]
  - Pulmonary embolism [None]
  - Adenocarcinoma of the cervix [None]
  - Anaemia [None]
  - Vitamin D deficiency [None]
  - Transient ischaemic attack [None]
  - Dyspnoea [None]
  - Dyspnoea [None]
  - Sleep apnoea syndrome [None]
  - Increased tendency to bruise [None]
  - Multiple sclerosis relapse [None]
  - Panic attack [None]
  - Breath sounds abnormal [Fatal]
  - Respiratory arrest [Fatal]
  - Cardiac arrest [Fatal]
  - Atrial septal defect repair [None]
  - Hyperglycaemia [None]
  - Intervertebral disc protrusion [None]
  - Presyncope [None]
  - Respiratory alkalosis [None]
  - Pain in extremity [None]
  - Sleep disorder [None]
  - Gait disturbance [None]
  - Restless legs syndrome [None]
  - Obesity [Fatal]
  - Benign neoplasm [None]
  - Multiple sclerosis [None]
  - Pulmonary hypertension [None]
  - Hyperglycaemia [None]
  - Muscle spasms [None]
  - Fatigue [None]
  - Weight decreased [None]
  - Cough [Fatal]
  - Lung neoplasm malignant [Fatal]
  - Metastases to uterus [None]
  - Multiple sclerosis [None]
  - Dizziness [None]

NARRATIVE: CASE EVENT DATE: 200801
